FAERS Safety Report 8368339-5 (Version None)
Quarter: 2012Q2

REPORT INFORMATION
  Report Type: 
  Country: None (occurrence: None)
  Receive Date: 20120517
  Receipt Date: 20120507
  Transmission Date: 20120825
  Serious: Yes (Other)
  Sender: FDA-Public Use
  Company Number: US-ELI_LILLY_AND_COMPANY-US201202007257

PATIENT
  Sex: Female
  Weight: 64.853 kg

DRUGS (5)
  1. CALCIUM [Concomitant]
  2. VITAMIN D [Concomitant]
  3. LEVOTHYROXINE SODIUM [Concomitant]
  4. TYLENOL                                 /SCH/ [Concomitant]
  5. FORTEO [Suspect]
     Indication: OSTEOPOROSIS
     Dosage: 20 UG, QD
     Route: 065

REACTIONS (2)
  - BREAST CANCER STAGE I [None]
  - MUSCLE SPASMS [None]
